FAERS Safety Report 11220774 (Version 1)
Quarter: 2015Q2

REPORT INFORMATION
  Report Type: Spontaneous
  Country: US (occurrence: US)
  Receive Date: 20150626
  Receipt Date: 20150626
  Transmission Date: 20150821
  Serious: No
  Sender: FDA-Public Use
  Company Number: US-AMGEN-USASP2015062044

PATIENT
  Age: 59 Year
  Sex: Female

DRUGS (2)
  1. LEUCOVORIN                         /00566701/ [Suspect]
     Active Substance: LEUCOVORIN
     Indication: PRODUCT USED FOR UNKNOWN INDICATION
     Dosage: UNK
     Route: 065
  2. ENBREL [Suspect]
     Active Substance: ETANERCEPT
     Indication: PSORIATIC ARTHROPATHY
     Dosage: 50 MG, WEEKLY
     Route: 065
     Dates: start: 20141101

REACTIONS (4)
  - Pruritus [Recovered/Resolved]
  - Pain [Not Recovered/Not Resolved]
  - Injection site pain [Not Recovered/Not Resolved]
  - Anxiety [Not Recovered/Not Resolved]

NARRATIVE: CASE EVENT DATE: 201503
